FAERS Safety Report 9842178 (Version 1)
Quarter: 2014Q1

REPORT INFORMATION
  Report Type: Spontaneous
  Country: CL (occurrence: CL)
  Receive Date: 20140124
  Receipt Date: 20140124
  Transmission Date: 20141002
  Serious: Yes (Other)
  Sender: FDA-Public Use
  Company Number: CL-BAYER-2014-011729

PATIENT
  Sex: Male

DRUGS (1)
  1. STIVARGA [Suspect]
     Route: 048

REACTIONS (2)
  - Convulsion [None]
  - Transaminases increased [None]
